FAERS Safety Report 5586437-6 (Version None)
Quarter: 2008Q1

REPORT INFORMATION
  Report Type: 
  Country: None (occurrence: None)
  Receive Date: 20080110
  Receipt Date: 20080107
  Transmission Date: 20080703
  Serious: Yes (Hospitalization, Other)
  Sender: FDA-Public Use
  Company Number: US-JNJFOC-20071202395

PATIENT
  Sex: Male
  Weight: 81.19 kg

DRUGS (12)
  1. REMICADE [Suspect]
     Route: 042
  2. REMICADE [Suspect]
     Indication: CROHN'S DISEASE
     Route: 042
  3. MERCAPTOPURINE [Concomitant]
  4. ALLOPURINOL [Concomitant]
  5. WELLBUTRIN [Concomitant]
  6. BENTYL [Concomitant]
  7. DOXYCYCLINE [Concomitant]
  8. CLARITIN [Concomitant]
  9. MESALAMINE [Concomitant]
  10. PROTONIX [Concomitant]
  11. ZOLOFT [Concomitant]
  12. AMBIEN [Concomitant]

REACTIONS (1)
  - ACUTE LEUKAEMIA [None]
